FAERS Safety Report 4325489-8 (Version None)
Quarter: 2004Q1

REPORT INFORMATION
  Report Type: 
  Country: None (occurrence: None)
  Receive Date: 20040324
  Receipt Date: 20040309
  Transmission Date: 20041129
  Serious: Yes (Other)
  Sender: FDA-Public Use
  Company Number: USA040361478

PATIENT
  Age: 78 Year

DRUGS (5)
  1. EVISTA [Suspect]
     Indication: OSTEOPOROSIS
  2. FOSAMAX [Concomitant]
  3. ACTONEL [Concomitant]
  4. MIACALCIN [Concomitant]
  5. CALCIUM [Concomitant]

REACTIONS (4)
  - ABDOMINAL DISCOMFORT [None]
  - LUMBAR VERTEBRAL FRACTURE [None]
  - OESOPHAGITIS [None]
  - THORACIC VERTEBRAL FRACTURE [None]
